FAERS Safety Report 8602737 (Version 2)
Quarter: 2012Q4

REPORT INFORMATION
  Report Type: 
  Country: BR (occurrence: BR)
  Receive Date: 20120607
  Receipt Date: 20121206
  Transmission Date: 20130627
  Serious: Yes (Other)
  Sender: FDA-Public Use
  Company Number: BR-AMGEN-BRASP2012034582

PATIENT
  Age: 51 Year
  Sex: Male
  Weight: 118 kg

DRUGS (13)
  1. ENBREL [Suspect]
     Indication: RHEUMATOID ARTHRITIS
     Dosage: 50 mg, once weekly
     Route: 058
     Dates: start: 201201, end: 201204
  2. ENBREL [Suspect]
     Dosage: 50 mg, qwk
     Route: 058
     Dates: start: 200906, end: 201205
  3. LOSARTAN [Concomitant]
     Dosage: UNK UNK, UNK
  4. LOSARTAN [Concomitant]
     Dosage: 1 tablet of 50 mg, 1x/day
     Route: 048
  5. HYDROCHLOROTHIAZIDE [Concomitant]
     Dosage: UNK UNK, UNK
  6. PREDNISONE [Concomitant]
     Dosage: UNK UNK, UNK
  7. METHOTREXATE [Concomitant]
     Dosage: UNK UNK, UNK
  8. METHOTREXATE [Concomitant]
     Dosage: 5 tablets, 1x/week
     Route: 048
  9. FOLIC ACID [Concomitant]
     Dosage: UNK UNK, UNK
  10. OMEPRAZOLE [Concomitant]
     Dosage: UNK UNK, UNK
  11. OMEPRAZOLE [Concomitant]
     Dosage: 1 tablet, 1x/day
     Route: 048
  12. LEXOTAN [Concomitant]
     Dosage: UNK UNK, UNK
  13. LEXOTAN [Concomitant]
     Dosage: 1 tablet, 1x/day
     Route: 048

REACTIONS (6)
  - Wound [Unknown]
  - Poor peripheral circulation [Unknown]
  - Wound complication [Unknown]
  - Arthropod bite [Unknown]
  - Wrong technique in drug usage process [Unknown]
  - Injection site pain [Not Recovered/Not Resolved]
